FAERS Safety Report 9008803 (Version 2)
Quarter: 2013Q1

REPORT INFORMATION
  Report Type: Spontaneous
  Country: US (occurrence: US)
  Receive Date: 20130111
  Receipt Date: 20130128
  Transmission Date: 20140127
  Serious: Yes (Death)
  Sender: FDA-Public Use
  Company Number: US-US-EMD SERONO, INC.-7180661

PATIENT
  Age: 57 None
  Sex: Female

DRUGS (6)
  1. REBIF [Suspect]
     Indication: MULTIPLE SCLEROSIS
     Route: 058
     Dates: start: 20090122, end: 201211
  2. KEPPRA [Concomitant]
     Indication: CONVULSION
     Route: 048
  3. IMITREX [Concomitant]
     Indication: MIGRAINE
  4. TOPAMAX [Concomitant]
     Indication: MIGRAINE
  5. REMERON [Concomitant]
     Indication: PRODUCT USED FOR UNKNOWN INDICATION
  6. CELEXA [Concomitant]
     Indication: PRODUCT USED FOR UNKNOWN INDICATION

REACTIONS (2)
  - Myocardial infarction [Fatal]
  - Multiple sclerosis [Fatal]
